FAERS Safety Report 6173415-1 (Version None)
Quarter: 2009Q2

REPORT INFORMATION
  Report Type: 
  Country: None (occurrence: None)
  Receive Date: 20090428
  Receipt Date: 20090417
  Transmission Date: 20091009
  Serious: Yes (Other)
  Sender: FDA-Public Use
  Company Number: 2009AL002401

PATIENT
  Age: 67 Year
  Sex: Male

DRUGS (4)
  1. MIRTAZAPINE [Suspect]
     Indication: DEPRESSION
     Dosage: 30 MG; PO
     Route: 048
     Dates: end: 20090201
  2. AMLODIPINE [Concomitant]
  3. TRAMADOL HCL [Concomitant]
  4. GABAPENTIN [Concomitant]

REACTIONS (4)
  - ABNORMAL SLEEP-RELATED EVENT [None]
  - NIGHTMARE [None]
  - PHYSICAL ASSAULT [None]
  - RAPID EYE MOVEMENTS SLEEP ABNORMAL [None]
